FAERS Safety Report 6601627-9 (Version None)
Quarter: 2010Q1

REPORT INFORMATION
  Report Type: 
  Country: None (occurrence: None)
  Receive Date: 20100225
  Receipt Date: 20100222
  Transmission Date: 20100710
  Serious: Yes (Hospitalization)
  Sender: FDA-Public Use
  Company Number: AR-ROCHE-672778

PATIENT
  Sex: Female
  Weight: 72 kg

DRUGS (5)
  1. TOCILIZUMAB [Suspect]
     Indication: RHEUMATOID ARTHRITIS
     Dosage: TEMPORARILY INTERRUPTED. FORM: VIALS LAST DOSE PRIOR TO SAE: 08 OCTOBER 2009.
     Route: 042
     Dates: start: 20070104, end: 20091105
  2. PLACEBO [Suspect]
     Indication: RHEUMATOID ARTHRITIS
     Dosage: THE PATIENT WAS PREVIOUSLY ENROLLED IN WA18063 AND RECEIVED PLACEBO.
     Route: 042
  3. METHOTREXATE [Concomitant]
     Dates: start: 20090910
  4. METHOTREXATE [Concomitant]
     Dates: start: 20091203
  5. PREDNISONE [Concomitant]
     Dates: start: 20060301, end: 20091204

REACTIONS (1)
  - CALCULUS URINARY [None]
